FAERS Safety Report 18728019 (Version 5)
Quarter: 2021Q3

REPORT INFORMATION
  Report Type: Spontaneous
  Country: CA (occurrence: CA)
  Receive Date: 20210111
  Receipt Date: 20210701
  Transmission Date: 20211014
  Serious: Yes (Other)
  Sender: FDA-Public Use
  Company Number: CA-CELLTRION INC.-2020CA022519

PATIENT

DRUGS (16)
  1. AZATHIOPRINE. [Concomitant]
     Active Substance: AZATHIOPRINE
     Dosage: UNK
     Dates: start: 202002
  2. PREDNISONE. [Concomitant]
     Active Substance: PREDNISONE
     Dosage: UNK
  3. INFLECTRA [Suspect]
     Active Substance: INFLIXIMAB-DYYB
     Dosage: 500 MG, AT WEEK 0, 2, 6 WEEKS, EVERY 8 WEEKS
     Route: 042
     Dates: start: 20200421
  4. INFLECTRA [Suspect]
     Active Substance: INFLIXIMAB-DYYB
     Dosage: 500 MG, AT WEEK 0, 2, 6 WEEKS, EVERY 8 WEEKS
     Route: 042
     Dates: start: 20201027
  5. INFLECTRA [Suspect]
     Active Substance: INFLIXIMAB-DYYB
     Dosage: 500 MG, AT WEEK 0, 2, 6 WEEKS, EVERY 8 WEEKS
     Route: 042
     Dates: start: 20201228
  6. INFLECTRA [Suspect]
     Active Substance: INFLIXIMAB-DYYB
     Dosage: 500 MG, AT WEEK 0, 2, 6 WEEKS, EVERY 8 WEEKS
     Route: 042
     Dates: start: 20201228
  7. MEZAVANT [Concomitant]
     Active Substance: MESALAMINE
     Dosage: UNK
  8. INFLECTRA [Suspect]
     Active Substance: INFLIXIMAB-DYYB
     Dosage: 500 MG, AT WEEK 0, 2, 6 WEEKS, EVERY 8 WEEKS
     Route: 042
     Dates: start: 20201228
  9. INFLECTRA [Suspect]
     Active Substance: INFLIXIMAB-DYYB
     Dosage: 500 MG, AT WEEK 0, 2, 6 WEEKS, EVERY 8 WEEKS
     Route: 042
     Dates: start: 20210226
  10. PREDNISONE. [Concomitant]
     Active Substance: PREDNISONE
     Indication: CONDITION AGGRAVATED
     Dosage: UNK
  11. INFLECTRA [Suspect]
     Active Substance: INFLIXIMAB-DYYB
     Dosage: 500 MG, AT WEEK 0, 2, 6 WEEKS, EVERY 8 WEEKS
     Route: 042
     Dates: start: 20210617
  12. INFLECTRA [Suspect]
     Active Substance: INFLIXIMAB-DYYB
     Indication: COLITIS ULCERATIVE
     Dosage: 500 MG, AT WEEK 0, 2, 6 WEEKS, EVERY 8 WEEKS
     Route: 042
     Dates: start: 20200406
  13. INFLECTRA [Suspect]
     Active Substance: INFLIXIMAB-DYYB
     Dosage: 500 MG, AT WEEK 0, 2, 6 WEEKS, EVERY 8 WEEKS
     Route: 042
     Dates: start: 20200522
  14. INFLECTRA [Suspect]
     Active Substance: INFLIXIMAB-DYYB
     Dosage: 500 MG, AT WEEK 0, 2, 6 WEEKS, EVERY 8 WEEKS
     Route: 042
     Dates: start: 20200708
  15. INFLECTRA [Suspect]
     Active Substance: INFLIXIMAB-DYYB
     Dosage: 500 MG, AT WEEK 0, 2, 6 WEEKS, EVERY 8 WEEKS
     Route: 042
     Dates: start: 20200908
  16. INFLECTRA [Suspect]
     Active Substance: INFLIXIMAB-DYYB
     Dosage: 500 MG, AT WEEK 0, 2, 6 WEEKS, EVERY 8 WEEKS
     Route: 042
     Dates: start: 20210423

REACTIONS (7)
  - Syncope [Unknown]
  - Condition aggravated [Not Recovered/Not Resolved]
  - Infusion site extravasation [Unknown]
  - Weight decreased [Not Recovered/Not Resolved]
  - Throat irritation [Unknown]
  - Vertigo [Recovered/Resolved]
  - Coating in mouth [Unknown]

NARRATIVE: CASE EVENT DATE: 20200522
